FAERS Safety Report 21322783 (Version 1)
Quarter: 2022Q3

REPORT INFORMATION
  Report Type: Spontaneous
  Country: US (occurrence: US)
  Receive Date: 20220912
  Receipt Date: 20220912
  Transmission Date: 20221027
  Serious: Yes (Other)
  Sender: FDA-Public Use
  Company Number: US-SA-SAC20220912000648

PATIENT
  Sex: Male

DRUGS (2)
  1. RANITIDINE [Suspect]
     Active Substance: RANITIDINE
     Dosage: UNK,OTC RANITIDINE FROM APPROX 1990 TO 2015
     Route: 048
     Dates: start: 1990, end: 2015
  2. RANITIDINE [Suspect]
     Active Substance: RANITIDINE
     Dosage: UNK, PRESCRIPTION RANITIDINE FROM APPROX 1990 TO 2015
     Route: 048
     Dates: start: 1990, end: 2015

REACTIONS (1)
  - Prostate cancer [Unknown]
